FAERS Safety Report 9500085 (Version 1)
Quarter: 2013Q1

REPORT INFORMATION
  Report Type: Spontaneous
  Country: US (occurrence: None)
  Receive Date: 20130129
  Receipt Date: 20130129
  Transmission Date: 20140127
  Serious: Yes (Other)
  Sender: FDA-Public Use
  Company Number: 1000030279

PATIENT
  Age: 72 Year
  Sex: 0

DRUGS (5)
  1. BYSTOLIC [Suspect]
     Route: 048
  2. WARFARIN (WARFARIN) [Concomitant]
  3. ASPIRIN (ACETYLSALICYLIC ACID) [Concomitant]
  4. AMLODIPINE (AMLODIPINE) [Concomitant]
  5. LIVALO (PITAVASTATIN CALCIM) (PITAVASTATIN CALCIUM) [Concomitant]

REACTIONS (1)
  - Angioedema [None]
